FAERS Safety Report 4306779-1 (Version None)
Quarter: 2004Q1

REPORT INFORMATION
  Report Type: 
  Country: None (occurrence: None)
  Receive Date: 20040225
  Receipt Date: 20040205
  Transmission Date: 20041129
  Serious: Yes (Other)
  Sender: FDA-Public Use
  Company Number: USA040258614

PATIENT
  Age: 7 Year
  Sex: Female
  Weight: 12 kg

DRUGS (1)
  1. HUMATROPE [Suspect]
     Indication: GROWTH HORMONE DEFICIENCY
     Dosage: 0.8 MG/6 WEEK

REACTIONS (4)
  - BLINDNESS UNILATERAL [None]
  - EAR HAEMORRHAGE [None]
  - MALAISE [None]
  - PHARMACEUTICAL PRODUCT COMPLAINT [None]
